FAERS Safety Report 14294290 (Version 2)
Quarter: 2018Q2

REPORT INFORMATION
  Report Type: Spontaneous
  Country: GB (occurrence: GB)
  Receive Date: 20171217
  Receipt Date: 20180501
  Transmission Date: 20180711
  Serious: Yes (Death, Life-Threatening, Other)
  Sender: FDA-Public Use
  Company Number: GB-BRISTOL-MYERS SQUIBB COMPANY-BMS-2017-111576

PATIENT
  Age: 86 Year
  Sex: Female
  Weight: 50.8 kg

DRUGS (1)
  1. APIXABAN [Suspect]
     Active Substance: APIXABAN
     Indication: DEEP VEIN THROMBOSIS
     Dosage: 5 MG, DAILY
     Route: 048

REACTIONS (3)
  - Rectal haemorrhage [Fatal]
  - Gastrointestinal haemorrhage [Fatal]
  - Condition aggravated [Fatal]
